FAERS Safety Report 9189731 (Version 1)
Quarter: 2013Q1

REPORT INFORMATION
  Report Type: Spontaneous
  Country: US (occurrence: None)
  Receive Date: 20130322
  Receipt Date: 20130322
  Transmission Date: 20140127
  Serious: No
  Sender: FDA-Public Use
  Company Number: None

PATIENT
  Sex: Male

DRUGS (1)
  1. ENBREL 50 MG AMGEN/PFIZER [Suspect]
     Indication: PSORIASIS
     Dosage: 50 MG WEEKLY SQ
     Route: 058

REACTIONS (1)
  - Local swelling [None]
